FAERS Safety Report 11314618 (Version 1)
Quarter: 2015Q3

REPORT INFORMATION
  Report Type: Spontaneous
  Country: JP (occurrence: JP)
  Receive Date: 20150727
  Receipt Date: 20150727
  Transmission Date: 20151125
  Serious: Yes (Death, Other)
  Sender: FDA-Public Use
  Company Number: JP-BAYER-2015-378829

PATIENT
  Age: 82 Year
  Sex: Male

DRUGS (3)
  1. CLOPIDOGREL SULFATE [Interacting]
     Active Substance: CLOPIDOGREL BISULFATE
     Indication: EMBOLISM ARTERIAL
     Route: 048
  2. ACETYLSALICYLIC ACID({=100 MG) [Suspect]
     Active Substance: ASPIRIN
     Indication: EMBOLISM ARTERIAL
     Route: 048
  3. ARGATROBAN. [Interacting]
     Active Substance: ARGATROBAN
     Indication: EMBOLISM ARTERIAL
     Dosage: UNK

REACTIONS (4)
  - Pulmonary embolism [Fatal]
  - Labelled drug-drug interaction medication error [None]
  - Cerebral infarction [None]
  - Subarachnoid haemorrhage [None]
